FAERS Safety Report 19244962 (Version 1)
Quarter: 2021Q2

REPORT INFORMATION
  Report Type: Spontaneous
  Country: US (occurrence: US)
  Receive Date: 20210511
  Receipt Date: 20210511
  Transmission Date: 20210717
  Serious: No
  Sender: FDA-Public Use
  Company Number: US-GILEAD-2021-0525278

PATIENT
  Sex: Male

DRUGS (2)
  1. EPCLUSA [Suspect]
     Active Substance: SOFOSBUVIR\VELPATASVIR
     Indication: CHRONIC HEPATITIS C
     Dosage: 1 DOSAGE FORM (400?100MG), QD
     Route: 048
  2. ASPIRIN 81 [Concomitant]
     Active Substance: ASPIRIN

REACTIONS (7)
  - Hypophagia [Unknown]
  - Abnormal faeces [Not Recovered/Not Resolved]
  - Tension headache [Recovered/Resolved]
  - Bowel movement irregularity [Unknown]
  - Decreased appetite [Unknown]
  - Dry mouth [Unknown]
  - Dyspepsia [Unknown]
